FAERS Safety Report 5652650-2 (Version None)
Quarter: 2008Q1

REPORT INFORMATION
  Report Type: 
  Country: None (occurrence: None)
  Receive Date: 20080131
  Receipt Date: 20071005
  Transmission Date: 20080703
  Serious: No
  Sender: FDA-Public Use
  Company Number: US200710001807

PATIENT
  Age: 54 Year
  Sex: Female

DRUGS (5)
  1. BYETTA [Suspect]
     Indication: TYPE 2 DIABETES MELLITUS
     Dosage: 5 UG, 2/D, SUBCUTANEOUS
     Route: 058
     Dates: start: 20070930
  2. METFORMIN HCL [Concomitant]
  3. GLYBURIDE [Concomitant]
  4. ACTOS /USA/ (PIOGLITAZONE HYDROCHLORIDE) [Concomitant]
  5. ASPIRIN /USA/ (ACETYLSALICYLIC ACID) [Concomitant]

REACTIONS (3)
  - BLOOD GLUCOSE INCREASED [None]
  - DRUG INEFFECTIVE [None]
  - HEADACHE [None]
